FAERS Safety Report 20180958 (Version 1)
Quarter: 2021Q4

REPORT INFORMATION
  Report Type: Spontaneous
  Country: US (occurrence: None)
  Receive Date: 20211213
  Receipt Date: 20211213
  Transmission Date: 20220303
  Serious: No
  Sender: FDA-Public Use
  Company Number: None

PATIENT
  Age: 56 Year
  Sex: Female
  Weight: 65.25 kg

DRUGS (1)
  1. HUMIRA [Suspect]
     Active Substance: ADALIMUMAB
     Indication: Psoriasis
     Dosage: OTHER QUANTITY : 3 INJECTION(S);?OTHER FREQUENCY : LOADING DOSE;?
     Route: 030
     Dates: start: 20211101, end: 20211122

REACTIONS (2)
  - Vitreous floaters [None]
  - Retinal tear [None]

NARRATIVE: CASE EVENT DATE: 20211106
